FAERS Safety Report 4560918-6 (Version None)
Quarter: 2005Q1

REPORT INFORMATION
  Report Type: 
  Country: None (occurrence: None)
  Receive Date: 20050126
  Receipt Date: 20040113
  Transmission Date: 20050727
  Serious: No
  Sender: FDA-Public Use
  Company Number: US-BRISTOL-MYERS SQUIBB COMPANY-12476958

PATIENT
  Age: 63 Year
  Sex: Female

DRUGS (8)
  1. GLUCOPHAGE [Suspect]
     Indication: DIABETES MELLITUS
     Route: 048
  2. FOSAMAX [Concomitant]
  3. PLAVIX [Concomitant]
  4. NORVASC [Concomitant]
  5. MAVIK [Concomitant]
  6. TOPROL-XL [Concomitant]
  7. DETROL [Concomitant]
  8. PREMARIN [Concomitant]

REACTIONS (1)
  - RASH [None]
